FAERS Safety Report 16630096 (Version 1)
Quarter: 2019Q3

REPORT INFORMATION
  Report Type: Spontaneous
  Country: US (occurrence: US)
  Receive Date: 20190725
  Receipt Date: 20190725
  Transmission Date: 20191004
  Serious: No
  Sender: FDA-Public Use
  Company Number: US-RECRO GAINESVILLE LLC-REPH-2018-000075

PATIENT
  Sex: Male

DRUGS (1)
  1. VERAPAMIL HYDROCHLORIDE SUSTAINED RELEASE [Suspect]
     Active Substance: VERAPAMIL HYDROCHLORIDE
     Indication: SUPRAVENTRICULAR TACHYCARDIA
     Dosage: UNK
     Dates: start: 201802

REACTIONS (7)
  - Off label use [Unknown]
  - Rash [Unknown]
  - Lip swelling [Unknown]
  - Oropharyngeal pain [Unknown]
  - Cough [Unknown]
  - Swollen tongue [Unknown]
  - Dysphonia [Unknown]

NARRATIVE: CASE EVENT DATE: 201802
